FAERS Safety Report 21542510 (Version 3)
Quarter: 2023Q1

REPORT INFORMATION
  Report Type: Report from Study
  Country: UY (occurrence: UY)
  Receive Date: 20221102
  Receipt Date: 20230215
  Transmission Date: 20230417
  Serious: Yes (Other)
  Sender: FDA-Public Use
  Company Number: UY-ABBVIE-4180966

PATIENT
  Age: 51 Year
  Sex: Female

DRUGS (1)
  1. RINVOQ [Suspect]
     Active Substance: UPADACITINIB
     Indication: Rheumatoid arthritis
     Route: 048
     Dates: start: 20220829

REACTIONS (11)
  - Hypertension [Unknown]
  - Hypoaesthesia [Unknown]
  - Sinusitis [Unknown]
  - Nasal inflammation [Unknown]
  - Facet joint syndrome [Unknown]
  - Spinal pain [Not Recovered/Not Resolved]
  - Eye inflammation [Unknown]
  - Osteoarthritis [Not Recovered/Not Resolved]
  - Dysstasia [Unknown]
  - Intervertebral disc protrusion [Not Recovered/Not Resolved]
  - Inflammation [Not Recovered/Not Resolved]

NARRATIVE: CASE EVENT DATE: 20220901
